FAERS Safety Report 11220215 (Version 1)
Quarter: 2015Q2

REPORT INFORMATION
  Report Type: Report from Study
  Country: US (occurrence: US)
  Receive Date: 20150625
  Receipt Date: 20150625
  Transmission Date: 20150821
  Serious: No
  Sender: FDA-Public Use
  Company Number: US-EXELIXIS-CABO-14004559

PATIENT
  Sex: Female

DRUGS (7)
  1. VITAMINS NOS [Concomitant]
     Active Substance: VITAMINS
  2. MULTIVITAMIN [Concomitant]
     Active Substance: VITAMINS
  3. LEVOTHYROXINE [Concomitant]
     Active Substance: LEVOTHYROXINE
  4. NEXIUM [Concomitant]
     Active Substance: ESOMEPRAZOLE MAGNESIUM
  5. VITAMIN B [Concomitant]
     Active Substance: VITAMIN B
  6. CABOZANTINIB [Suspect]
     Active Substance: CABOZANTINIB
     Indication: THYROID CANCER
     Dosage: 60 MG, QD
     Route: 048
     Dates: start: 20140715, end: 20150205
  7. CABOZANTINIB [Suspect]
     Active Substance: CABOZANTINIB
     Dosage: 40 MG, QD
     Route: 048
     Dates: start: 20150218

REACTIONS (14)
  - Pain in extremity [Unknown]
  - Weight decreased [Unknown]
  - Diarrhoea [Not Recovered/Not Resolved]
  - Nail disorder [Not Recovered/Not Resolved]
  - Muscle spasms [Unknown]
  - Nausea [Unknown]
  - Eating disorder [Unknown]
  - Alopecia [Unknown]
  - Dysphonia [Not Recovered/Not Resolved]
  - Erythema [Unknown]
  - Hyperkeratosis [Unknown]
  - Dizziness [Unknown]
  - Mouth ulceration [Unknown]
  - Palmar-plantar erythrodysaesthesia syndrome [Unknown]

NARRATIVE: CASE EVENT DATE: 2014
